FAERS Safety Report 17046653 (Version 1)
Quarter: 2019Q4

REPORT INFORMATION
  Report Type: Spontaneous
  Country: US (occurrence: US)
  Receive Date: 20191119
  Receipt Date: 20191119
  Transmission Date: 20200122
  Serious: Yes (Other)
  Sender: FDA-Public Use
  Company Number: US-TEVA-2019-US-1138203

PATIENT
  Sex: Female

DRUGS (2)
  1. AUSTEDO [Suspect]
     Active Substance: DEUTETRABENAZINE
     Indication: TARDIVE DYSKINESIA
     Dosage: 12 MILLIGRAM DAILY;
     Route: 048
     Dates: start: 2018
  2. VITAMIN D3 [Concomitant]
     Active Substance: CHOLECALCIFEROL

REACTIONS (15)
  - Memory impairment [Unknown]
  - Dysarthria [Unknown]
  - Dyskinesia [Unknown]
  - Confusional state [Unknown]
  - Salivary hypersecretion [Unknown]
  - Chapped lips [Unknown]
  - Suicidal ideation [Unknown]
  - Crying [Unknown]
  - Disturbance in attention [Unknown]
  - Pain in jaw [Unknown]
  - Depression [Unknown]
  - Anxiety [Unknown]
  - Tooth loss [Unknown]
  - Hypersomnia [Unknown]
  - Therapy cessation [Unknown]
